FAERS Safety Report 5231906-1 (Version None)
Quarter: 2007Q1

REPORT INFORMATION
  Report Type: 
  Country: None (occurrence: None)
  Receive Date: 20070206
  Receipt Date: 20070125
  Transmission Date: 20070707
  Serious: Yes (Hospitalization, Other)
  Sender: FDA-Public Use
  Company Number: CN-PFIZER INC-2007004199

PATIENT
  Age: 42 Year
  Sex: Male

DRUGS (2)
  1. CELEBREX [Suspect]
     Indication: PROCEDURAL PAIN
     Route: 048
     Dates: start: 20061224, end: 20061229
  2. CARBAMAZEPINE [Concomitant]
     Route: 048
     Dates: start: 20061201, end: 20061210

REACTIONS (2)
  - METASTASES TO KIDNEY [None]
  - RENAL FAILURE ACUTE [None]
